FAERS Safety Report 8588500 (Version 2)
Quarter: 2012Q4

REPORT INFORMATION
  Report Type: 
  Country: US (occurrence: US)
  Receive Date: 20120531
  Receipt Date: 20121025
  Transmission Date: 20130627
  Serious: Yes (Hospitalization)
  Sender: FDA-Public Use
  Company Number: US-BAYER-2012-052569

PATIENT
  Age: 37 Year
  Sex: Female
  Weight: 92.97 kg

DRUGS (10)
  1. OCELLA [Suspect]
     Indication: PREMENSTRUAL DYSPHORIC DISORDER
     Dosage: UNK
     Dates: start: 20090422, end: 20090615
  2. YAZ [Suspect]
     Indication: PREMENSTRUAL DYSPHORIC DISORDER
  3. PROZAC [Concomitant]
  4. PROTONIX [Concomitant]
     Indication: GASTROESOPHAGEAL REFLUX
     Dosage: 20 mg, QD
  5. ZOMIG [Concomitant]
     Indication: MIGRAINE
     Dosage: 2.5 mg, UNK
     Dates: start: 2006, end: 2010
  6. PANTOPRAZOLE [Concomitant]
     Indication: GASTROESOPHAGEAL REFLUX
     Dosage: 20 mg, QD
     Dates: start: 2006, end: 2011
  7. FLUOXETINE [Concomitant]
     Indication: DEPRESSION
     Dosage: 40 mg, QD
     Dates: start: 2008, end: 2009
  8. TOPIRAMATE [Concomitant]
     Indication: MIGRAINE
     Dosage: UNK
     Dates: start: 2009, end: 2010
  9. PROMETHAZINE [Concomitant]
     Indication: PAIN
     Dosage: 25 mg, PRN
  10. OXYCODONE/APAP [Concomitant]
     Indication: PAIN
     Dosage: 7.5/325 mg, PRN

REACTIONS (5)
  - Deep vein thrombosis [Recovered/Resolved]
  - Injury [Recovered/Resolved]
  - Pain [None]
  - Pain in extremity [Recovered/Resolved]
  - Oedema peripheral [Recovered/Resolved]
